FAERS Safety Report 19560732 (Version 1)
Quarter: 2021Q3

REPORT INFORMATION
  Report Type: Spontaneous
  Country: US (occurrence: US)
  Receive Date: 20210715
  Receipt Date: 20210715
  Transmission Date: 20211014
  Serious: Yes (Disabling, Other)
  Sender: FDA-Public Use
  Company Number: None

PATIENT
  Age: 51 Year
  Sex: Female
  Weight: 90 kg

DRUGS (5)
  1. RESTORIL [Suspect]
     Active Substance: TEMAZEPAM
  2. VITAMIN B12 [Concomitant]
     Active Substance: CYANOCOBALAMIN
  3. NP THYROID [Concomitant]
     Active Substance: LEVOTHYROXINE\LIOTHYRONINE
  4. XANAX [Suspect]
     Active Substance: ALPRAZOLAM
     Indication: INSOMNIA
     Dates: start: 20091001, end: 20121123
  5. MAGNESIUM [Concomitant]
     Active Substance: MAGNESIUM

REACTIONS (8)
  - Product dose omission issue [None]
  - Cognitive disorder [None]
  - Central nervous system injury [None]
  - Seizure [None]
  - Brain injury [None]
  - Decreased appetite [None]
  - Gait disturbance [None]
  - Thirst decreased [None]

NARRATIVE: CASE EVENT DATE: 20120327
